FAERS Safety Report 6235103-2 (Version None)
Quarter: 2009Q2

REPORT INFORMATION
  Report Type: 
  Country: None (occurrence: None)
  Receive Date: 20090615
  Receipt Date: 20090605
  Transmission Date: 20091009
  Serious: Yes (Life-Threatening)
  Sender: FDA-Public Use
  Company Number: LTI2009A00165

PATIENT
  Age: 44 Year
  Sex: Male

DRUGS (10)
  1. ACTOS [Suspect]
     Indication: TYPE 2 DIABETES MELLITUS
     Dosage: (1 D) ORAL
     Route: 048
     Dates: end: 20090401
  2. COKENZEN 16/12.5 (CANDESARTAN CILEXETIL,HYDROCHLOROTHIAZIDE) [Suspect]
     Indication: HYPERTENSION
     Dosage: ORAL
     Route: 048
  3. AMARYL [Suspect]
     Indication: TYPE 2 DIABETES MELLITUS
     Dosage: ORAL
     Dates: end: 20090401
  4. NEXEN (NIMESULIDE) [Suspect]
     Dosage: 300 MG (100 MG,3 IN 1 D) ORAL
     Route: 048
  5. METFORMIN HCL [Concomitant]
  6. LERCANIDIPINE [Concomitant]
  7. NEXIUM [Concomitant]
  8. ZOLPIDEM TARTRATE [Concomitant]
  9. LAMALINE (CAFFEINE, PARACETAMOL, PAPAVER SOMNIFERUM LATEX) [Concomitant]
  10. TANXENE (CLORAZEPATE DIPOTASSIUM) [Concomitant]

REACTIONS (7)
  - ABDOMINAL PAIN [None]
  - ACIDOSIS [None]
  - ACUTE RESPIRATORY DISTRESS SYNDROME [None]
  - AGITATION [None]
  - HAEMODIALYSIS [None]
  - HYPERLACTACIDAEMIA [None]
  - RENAL FAILURE ACUTE [None]
